FAERS Safety Report 24574774 (Version 1)
Quarter: 2024Q4

REPORT INFORMATION
  Report Type: Spontaneous
  Country: US (occurrence: US)
  Receive Date: 20241104
  Receipt Date: 20241104
  Transmission Date: 20250115
  Serious: No
  Sender: ASTELLAS
  Company Number: US-ASTELLAS-2024-AER-015267

PATIENT
  Age: 52 Year
  Sex: Male

DRUGS (5)
  1. PADCEV [Suspect]
     Active Substance: ENFORTUMAB VEDOTIN-EJFV
     Indication: Product used for unknown indication
     Route: 065
     Dates: start: 20240918
  2. KEYTRUDA [Concomitant]
     Active Substance: PEMBROLIZUMAB
     Indication: Product used for unknown indication
     Route: 042
  3. TRAMADOL [Concomitant]
     Active Substance: TRAMADOL
     Indication: Product used for unknown indication
     Route: 065
  4. AVODART [Concomitant]
     Active Substance: DUTASTERIDE
     Indication: Product used for unknown indication
     Route: 065
  5. FLOMAX [Concomitant]
     Active Substance: TAMSULOSIN HYDROCHLORIDE
     Indication: Product used for unknown indication
     Route: 065

REACTIONS (4)
  - Fatigue [Not Recovered/Not Resolved]
  - Dyspnoea [Not Recovered/Not Resolved]
  - Headache [Not Recovered/Not Resolved]
  - Taste disorder [Not Recovered/Not Resolved]

NARRATIVE: CASE EVENT DATE: 20241001
